FAERS Safety Report 6149025-9 (Version None)
Quarter: 2009Q2

REPORT INFORMATION
  Report Type: 
  Country: None (occurrence: None)
  Receive Date: 20090409
  Receipt Date: 20090330
  Transmission Date: 20091009
  Serious: Yes (Other)
  Sender: FDA-Public Use
  Company Number: US-JNJFOC-20090400080

PATIENT
  Age: 48 Year
  Sex: Female
  Weight: 74.84 kg

DRUGS (2)
  1. EXTRA STRENGTH TYLENOL [Suspect]
     Route: 048
  2. EXTRA STRENGTH TYLENOL [Suspect]
     Indication: INSOMNIA
     Route: 048

REACTIONS (5)
  - ANXIETY [None]
  - EXPIRED DRUG ADMINISTERED [None]
  - INSOMNIA [None]
  - PALPITATIONS [None]
  - PRODUCT TAMPERING [None]
